FAERS Safety Report 10588278 (Version 1)
Quarter: 2014Q4

REPORT INFORMATION
  Report Type: Spontaneous
  Country: FR (occurrence: FR)
  Receive Date: 20141117
  Receipt Date: 20141117
  Transmission Date: 20150529
  Serious: Yes (Other)
  Sender: FDA-Public Use
  Company Number: FR-SA-2014SA154113

PATIENT
  Age: 55 Year
  Sex: Female

DRUGS (3)
  1. PILOCARPINE [Concomitant]
     Active Substance: PILOCARPINE
  2. LOVENOX [Suspect]
     Active Substance: ENOXAPARIN SODIUM
     Route: 065
     Dates: start: 201410
  3. METHOTREXATE [Concomitant]
     Active Substance: METHOTREXATE

REACTIONS (5)
  - Dizziness [Unknown]
  - Epistaxis [Unknown]
  - Intra-abdominal haematoma [Unknown]
  - Migraine [Unknown]
  - Abdominal pain upper [Unknown]
